FAERS Safety Report 9943032 (Version 8)
Quarter: 2014Q4

REPORT INFORMATION
  Report Type: Report from Study
  Country: CA (occurrence: CA)
  Receive Date: 20140303
  Receipt Date: 20141209
  Transmission Date: 20150529
  Serious: Yes (Death, Hospitalization, Other)
  Sender: FDA-Public Use
  Company Number: CA-ABBVIE-13P-028-1104449-00

PATIENT
  Age: 86 Year
  Sex: Male
  Weight: 60 kg

DRUGS (13)
  1. LUPRON DEPOT [Suspect]
     Active Substance: LEUPROLIDE ACETATE
     Route: 030
     Dates: end: 20140905
  2. TOLOXIN [Concomitant]
     Active Substance: DIGOXIN
     Indication: PRODUCT USED FOR UNKNOWN INDICATION
  3. LASIX [Concomitant]
     Active Substance: FUROSEMIDE
     Indication: PRODUCT USED FOR UNKNOWN INDICATION
  4. LASIX [Concomitant]
     Active Substance: FUROSEMIDE
  5. ACCUPRO [Concomitant]
     Active Substance: QUINAPRIL HYDROCHLORIDE
     Indication: PRODUCT USED FOR UNKNOWN INDICATION
     Dosage: IN THE MORNING
  6. METOPROLOL [Concomitant]
     Active Substance: METOPROLOL
  7. ACCUPRO [Concomitant]
     Active Substance: QUINAPRIL HYDROCHLORIDE
  8. METOPROLOL [Concomitant]
     Active Substance: METOPROLOL
     Indication: PRODUCT USED FOR UNKNOWN INDICATION
  9. ISMO [Concomitant]
     Active Substance: ISOSORBIDE MONONITRATE
     Indication: PRODUCT USED FOR UNKNOWN INDICATION
  10. LUPRON DEPOT [Suspect]
     Active Substance: LEUPROLIDE ACETATE
     Dosage: ON HOLD
     Route: 030
     Dates: start: 20140227, end: 20140523
  11. ANADROL [Concomitant]
     Active Substance: OXYMETHOLONE
     Indication: PRODUCT USED FOR UNKNOWN INDICATION
     Dosage: 3 TABLETS DAILY
  12. LUPRON DEPOT [Suspect]
     Active Substance: LEUPROLIDE ACETATE
     Indication: PROSTATE CANCER
     Route: 030
     Dates: start: 20130525, end: 20140225
  13. PRADAXA [Concomitant]
     Active Substance: DABIGATRAN ETEXILATE MESYLATE
     Indication: PRODUCT USED FOR UNKNOWN INDICATION

REACTIONS (10)
  - Cardiac failure [Fatal]
  - Feeling abnormal [Unknown]
  - Oedema [Unknown]
  - Hypotension [Unknown]
  - Fluid retention [Recovering/Resolving]
  - Pulmonary oedema [Recovering/Resolving]
  - Hypertension [Unknown]
  - Peripheral swelling [Unknown]
  - Pulmonary oedema [Unknown]
  - Cough [Unknown]

NARRATIVE: CASE EVENT DATE: 20130608
